FAERS Safety Report 4741786-6 (Version None)
Quarter: 2005Q3

REPORT INFORMATION
  Report Type: 
  Country: None (occurrence: None)
  Receive Date: 20050801
  Receipt Date: 20050624
  Transmission Date: 20060218
  Serious: No
  Sender: FDA-Public Use
  Company Number: 2005PV000127

PATIENT
  Age: 71 Year
  Sex: Female

DRUGS (1)
  1. BYETTA [Suspect]
     Indication: DIABETES MELLITUS NON-INSULIN-DEPENDENT
     Dosage: 5 UG; BID; SC
     Route: 058
     Dates: start: 20050623

REACTIONS (1)
  - BLOOD GLUCOSE INCREASED [None]
